FAERS Safety Report 5659832-4 (Version None)
Quarter: 2008Q1

REPORT INFORMATION
  Report Type: 
  Country: None (occurrence: None)
  Receive Date: 20080311
  Receipt Date: 20070914
  Transmission Date: 20080703
  Serious: Yes (Other)
  Sender: FDA-Public Use
  Company Number: US-BAYER-200712366BCC

PATIENT
  Age: 67 Year
  Sex: Female
  Weight: 91 kg

DRUGS (17)
  1. ALEVE [Suspect]
     Indication: ARTHRITIS
     Dosage: UNIT DOSE: 220 MG
     Route: 048
  2. ASPIRIN [Interacting]
     Indication: ISCHAEMIC HEART DISEASE PROPHYLAXIS
     Dosage: TOTAL DAILY DOSE: 81 MG  UNIT DOSE: 81 MG
     Route: 048
  3. OMEPRAZOLE [Concomitant]
     Route: 048
  4. LASIX [Concomitant]
  5. KLOR-CON [Concomitant]
  6. DILTIAZEM [Concomitant]
  7. LEXAPRO [Concomitant]
  8. LISINOPRIL [Concomitant]
  9. SIMVASTATIN [Concomitant]
  10. ADVAIR DISKUS 100/50 [Concomitant]
  11. ACETAMINOPHEN [Concomitant]
  12. CALCIUM CITRATE PLUS D [Concomitant]
  13. COQ-10 [Concomitant]
  14. CHONDROITIN [Concomitant]
  15. MSM 1000 [Concomitant]
  16. MULTI-VITAMIN [Concomitant]
  17. DSS PLUS [Concomitant]

REACTIONS (1)
  - GASTROINTESTINAL ULCER [None]
